FAERS Safety Report 5086994-2 (Version None)
Quarter: 2006Q3

REPORT INFORMATION
  Report Type: 
  Country: None (occurrence: None)
  Receive Date: 20060821
  Receipt Date: 20060804
  Transmission Date: 20061208
  Serious: Yes (Hospitalization, Other)
  Sender: FDA-Public Use
  Company Number: 2006AL002166

PATIENT
  Age: 79 Year
  Sex: Female

DRUGS (2)
  1. DICLOFENAC SODIUM [Suspect]
     Indication: ARTHRALGIA
     Dosage: 50 MG;BID;PO
     Route: 048
     Dates: start: 19910101, end: 20060506
  2. EXEMESTANE [Concomitant]

REACTIONS (3)
  - ABDOMINAL PAIN UPPER [None]
  - HAEMATEMESIS [None]
  - MELAENA [None]
